FAERS Safety Report 6568540-7 (Version None)
Quarter: 2010Q1

REPORT INFORMATION
  Report Type: 
  Country: None (occurrence: None)
  Receive Date: 20100203
  Receipt Date: 20100129
  Transmission Date: 20100710
  Serious: Yes (Other)
  Sender: FDA-Public Use
  Company Number: JP-BRACCO-003129

PATIENT
  Age: 25 Year
  Sex: Male

DRUGS (13)
  1. IOPAMIDOL [Suspect]
     Indication: ANGIOGRAM
  2. VOLTAREN [Suspect]
     Route: 065
  3. BOSMIN [Suspect]
     Indication: ANGIOGRAM
  4. FARMORUBICIN [Suspect]
     Indication: THERAPEUTIC EMBOLISATION
  5. FARMORUBICIN [Suspect]
     Indication: HEPATIC NEOPLASM MALIGNANT
  6. GASTER [Suspect]
     Route: 065
  7. PANSPORINE [Suspect]
     Route: 065
  8. LIPIODOL ULTRA-FLUID [Suspect]
     Indication: THERAPEUTIC EMBOLISATION
  9. SPONGEL [Suspect]
     Indication: THERAPEUTIC EMBOLISATION
  10. STRONG NEO-MINOPHAGEN C [Concomitant]
     Dosage: 2 WEEKS 6 DAYS
     Route: 065
  11. LEPETAN [Concomitant]
     Route: 065
  12. LENDORMIN [Concomitant]
     Route: 065
  13. GLUTATHIONE [Concomitant]
     Dosage: 2 WEEKS 6 DAYS
     Route: 065

REACTIONS (1)
  - RHABDOMYOLYSIS [None]
